FAERS Safety Report 6078331-1 (Version None)
Quarter: 2009Q1

REPORT INFORMATION
  Report Type: 
  Country: None (occurrence: None)
  Receive Date: 20090213
  Receipt Date: 20090204
  Transmission Date: 20090719
  Serious: Yes (Hospitalization)
  Sender: FDA-Public Use
  Company Number: SE-JNJFOC-20090201117

PATIENT
  Age: 30 Year
  Sex: Male

DRUGS (4)
  1. REMICADE [Suspect]
     Indication: COLITIS ULCERATIVE
     Route: 042
  2. IMUREL [Suspect]
     Indication: COLITIS ULCERATIVE
  3. ASACOL [Concomitant]
  4. OMEPRAZOLE [Concomitant]

REACTIONS (4)
  - APPETITE DISORDER [None]
  - DIARRHOEA [None]
  - MALAISE [None]
  - PYREXIA [None]
